FAERS Safety Report 5141464-8 (Version None)
Quarter: 2006Q4

REPORT INFORMATION
  Report Type: 
  Country: None (occurrence: None)
  Receive Date: 20061101
  Receipt Date: 20060915
  Transmission Date: 20070319
  Serious: Yes (Hospitalization)
  Sender: FDA-Public Use
  Company Number: US-BRISTOL-MYERS SQUIBB COMPANY-13512108

PATIENT
  Age: 71 Year
  Sex: Male

DRUGS (9)
  1. DASATINIB [Suspect]
     Indication: CHRONIC MYELOID LEUKAEMIA
     Route: 048
     Dates: start: 20060803, end: 20060914
  2. COMBIVENT [Concomitant]
  3. ALLOPURINOL [Concomitant]
  4. ATENOLOL [Concomitant]
  5. NEXIUM [Concomitant]
  6. FLUTICASONE PROPIONATE [Concomitant]
  7. NEURONTIN [Concomitant]
  8. ZONISAMIDE [Concomitant]
  9. FUROSEMIDE [Concomitant]

REACTIONS (2)
  - HYPOXIA [None]
  - PLEURAL EFFUSION [None]
